FAERS Safety Report 12962889 (Version 1)
Quarter: 2016Q4

REPORT INFORMATION
  Report Type: Report from Study
  Country: DE (occurrence: DE)
  Receive Date: 20161122
  Receipt Date: 20161122
  Transmission Date: 20170207
  Serious: Yes (Hospitalization)
  Sender: FDA-Public Use
  Company Number: DE-ROCHE-1299590

PATIENT
  Age: 55 Year
  Sex: Male
  Weight: 59 kg

DRUGS (1)
  1. BEVACIZUMAB [Suspect]
     Active Substance: BEVACIZUMAB
     Indication: BRONCHIAL CARCINOMA
     Dosage: LAST APPLICATION OF BEVACIZUMAB PRIOR TO EVENT WAS ON 18/OCT/2013 (SECOND CYCLE)
     Route: 042
     Dates: start: 20130927, end: 20131121

REACTIONS (2)
  - Pancytopenia [Not Recovered/Not Resolved]
  - Anaemia [Unknown]

NARRATIVE: CASE EVENT DATE: 20131031
